FAERS Safety Report 20066428 (Version 1)
Quarter: 2021Q4

REPORT INFORMATION
  Report Type: Spontaneous
  Country: CN (occurrence: None)
  Receive Date: 20211115
  Receipt Date: 20211115
  Transmission Date: 20220303
  Serious: Yes (Other)
  Sender: FDA-Public Use
  Company Number: CN-ROCHE-2951254

PATIENT
  Age: 53 Year
  Sex: Male

DRUGS (14)
  1. TRASTUZUMAB [Suspect]
     Active Substance: TRASTUZUMAB
     Indication: Gastric cancer
     Route: 065
     Dates: start: 20181023, end: 20190203
  2. TRASTUZUMAB [Suspect]
     Active Substance: TRASTUZUMAB
     Route: 065
     Dates: start: 201902
  3. TRASTUZUMAB [Suspect]
     Active Substance: TRASTUZUMAB
     Route: 065
     Dates: start: 20200415
  4. CAPECITABINE [Suspect]
     Active Substance: CAPECITABINE
     Indication: Gastric cancer
     Route: 065
     Dates: start: 201902
  5. CAPECITABINE [Suspect]
     Active Substance: CAPECITABINE
     Route: 065
     Dates: start: 20200415
  6. CISPLATIN [Concomitant]
     Active Substance: CISPLATIN
     Dates: start: 20181023, end: 20190203
  7. FLUOROURACIL [Concomitant]
     Active Substance: FLUOROURACIL
     Dates: start: 20181023, end: 20190203
  8. TEGAFUR [Concomitant]
     Active Substance: TEGAFUR
  9. OXALIPLATIN [Concomitant]
     Active Substance: OXALIPLATIN
  10. APATINIB [Concomitant]
     Active Substance: APATINIB
     Dosage: ON 12 APR 2021, 20 MAY 2021, AND 24 JUN 2021
     Dates: end: 20210906
  11. CAMRELIZUMAB [Concomitant]
     Active Substance: CAMRELIZUMAB
     Dates: start: 20211005
  12. GEMCITABINE [Concomitant]
     Active Substance: GEMCITABINE
  13. GIMERACIL [Concomitant]
     Active Substance: GIMERACIL
  14. OTERACIL POTASSIUM [Concomitant]
     Active Substance: OTERACIL POTASSIUM

REACTIONS (3)
  - Gastrointestinal disorder [Unknown]
  - Myelosuppression [Unknown]
  - Septic shock [Unknown]
